APPROVED DRUG PRODUCT: HYDROCHLOROTHIAZIDE
Active Ingredient: HYDROCHLOROTHIAZIDE
Strength: 50MG
Dosage Form/Route: TABLET;ORAL
Application: A087587 | Product #001
Applicant: WARNER CHILCOTT DIV WARNER LAMBERT CO
Approved: May 3, 1982 | RLD: No | RS: No | Type: DISCN